FAERS Safety Report 10966302 (Version 1)
Quarter: 2015Q1

REPORT INFORMATION
  Report Type: Spontaneous
  Country: US (occurrence: None)
  Receive Date: 20150327
  Receipt Date: 20150327
  Transmission Date: 20150721
  Serious: Yes (Disabling)
  Sender: FDA-Public Use
  Company Number: None

PATIENT
  Age: 27 Year
  Sex: Female

DRUGS (1)
  1. AIM BUBBLE BERRY [Suspect]
     Active Substance: SODIUM FLUORIDE
     Indication: DENTAL CARE
     Dates: start: 20150201, end: 20150315

REACTIONS (1)
  - Nausea [None]

NARRATIVE: CASE EVENT DATE: 20150315
